FAERS Safety Report 4548309-5 (Version None)
Quarter: 2005Q1

REPORT INFORMATION
  Report Type: 
  Country: None (occurrence: None)
  Receive Date: 20050110
  Receipt Date: 20041004
  Transmission Date: 20050727
  Serious: Yes (Other)
  Sender: FDA-Public Use
  Company Number: US-MERCK-0412USA03172

PATIENT
  Sex: Male

DRUGS (2)
  1. VIOXX [Suspect]
     Indication: NEURALGIA
     Route: 048
  2. VIOXX [Suspect]
     Indication: GOUT
     Route: 048

REACTIONS (2)
  - HEART INJURY [None]
  - MYOCARDIAL INFARCTION [None]
